FAERS Safety Report 21159624 (Version 2)
Quarter: 2024Q1

REPORT INFORMATION
  Report Type: Spontaneous
  Country: CA (occurrence: CA)
  Receive Date: 20220802
  Receipt Date: 20240316
  Transmission Date: 20240409
  Serious: Yes (Other)
  Sender: FDA-Public Use
  Company Number: CA-ABBVIE-22K-028-4487552-00

PATIENT
  Sex: Male

DRUGS (9)
  1. DIVALPROEX SODIUM [Suspect]
     Active Substance: DIVALPROEX SODIUM
     Indication: Product used for unknown indication
     Dosage: REGIMEN 1
     Route: 065
  2. ZOPICLONE [Suspect]
     Active Substance: ZOPICLONE
     Indication: Product used for unknown indication
     Dosage: REGIMEN 1
     Route: 065
  3. CLOZAPINE [Suspect]
     Active Substance: CLOZAPINE
     Indication: Product used for unknown indication
     Dosage: REGIMEN 1
     Route: 065
  4. CLOZAPINE [Suspect]
     Active Substance: CLOZAPINE
     Indication: Product used for unknown indication
     Dosage: REGIMEN 2
     Route: 065
  5. FLUOXETINE [Suspect]
     Active Substance: FLUOXETINE HYDROCHLORIDE
     Indication: Product used for unknown indication
     Dosage: REGIMEN 1
     Route: 065
  6. ZUCLOPENTHIXOL DECANOATE [Suspect]
     Active Substance: ZUCLOPENTHIXOL DECANOATE
     Indication: Product used for unknown indication
     Dosage: REGIMEN 1
     Route: 065
  7. PROCYCLIDINE [Suspect]
     Active Substance: PROCYCLIDINE
     Indication: Product used for unknown indication
     Dosage: REGIMEN 1
     Route: 065
  8. OXAZEPAM [Suspect]
     Active Substance: OXAZEPAM
     Indication: Product used for unknown indication
     Dosage: REGIMEN 1
     Route: 065
  9. BUSPIRONE [Suspect]
     Active Substance: BUSPIRONE HYDROCHLORIDE
     Indication: Product used for unknown indication
     Dosage: REGIMEN 1
     Route: 065

REACTIONS (4)
  - Orthostatic hypotension [Recovering/Resolving]
  - Obesity [Recovering/Resolving]
  - Sedation [Recovering/Resolving]
  - Tardive dyskinesia [Recovering/Resolving]
